FAERS Safety Report 23090803 (Version 1)
Quarter: 2023Q4

REPORT INFORMATION
  Report Type: Spontaneous
  Country: CN (occurrence: CN)
  Receive Date: 20231020
  Receipt Date: 20231020
  Transmission Date: 20240110
  Serious: Yes (Death)
  Sender: FDA-Public Use
  Company Number: CN-009507513-2310CHN007221

PATIENT
  Age: 17 Year
  Sex: Female

DRUGS (3)
  1. IMIPENEM AND CILASTATIN [Suspect]
     Active Substance: CILASTATIN SODIUM\IMIPENEM
     Indication: Anti-infective therapy
     Dosage: 1 GRAM, Q8H
     Dates: start: 2022
  2. AMPHOTERICIN B [Suspect]
     Active Substance: AMPHOTERICIN B
     Indication: Anti-infective therapy
     Dosage: 5 MILLIGRAM, Q24H
     Dates: start: 2022
  3. POLYMYXIN B [Suspect]
     Active Substance: POLYMYXIN B
     Indication: Anti-infective therapy
     Dosage: 500,000 UNITS, Q12H
     Dates: start: 2022

REACTIONS (1)
  - Treatment failure [Fatal]
